FAERS Safety Report 18265574 (Version 1)
Quarter: 2020Q3

REPORT INFORMATION
  Report Type: Spontaneous
  Country: CN (occurrence: CN)
  Receive Date: 20200914
  Receipt Date: 20200914
  Transmission Date: 20201103
  Serious: Yes (Hospitalization, Other)
  Sender: FDA-Public Use
  Company Number: CN-BAXTER-2020BAX018327

PATIENT
  Age: 36 Year
  Sex: Female

DRUGS (3)
  1. ADALAT [Concomitant]
     Active Substance: NIFEDIPINE
     Indication: HYPERTENSION
     Route: 065
  2. DIANEAL [Suspect]
     Active Substance: CALCIUM CHLORIDE\DEXTROSE\MAGNESIUM CHLORIDE\SODIUM CHLORIDE\SODIUM LACTATE
     Indication: PERITONEAL DIALYSIS
     Dosage: 4 BAGS
     Route: 033
     Dates: start: 201703
  3. DIANEAL [Suspect]
     Active Substance: CALCIUM CHLORIDE\DEXTROSE\MAGNESIUM CHLORIDE\SODIUM CHLORIDE\SODIUM LACTATE
     Indication: END STAGE RENAL DISEASE

REACTIONS (9)
  - Ultrafiltration failure [Not Recovered/Not Resolved]
  - Peritoneal cloudy effluent [Recovered/Resolved]
  - Pyrexia [Recovered/Resolved]
  - Peritoneal cloudy effluent [Recovered/Resolved]
  - Blood glucose increased [Not Recovered/Not Resolved]
  - Oedema peripheral [Recovering/Resolving]
  - Bloody peritoneal effluent [Recovered/Resolved]
  - Heart rate increased [Recovering/Resolving]
  - Hypertension [Recovering/Resolving]

NARRATIVE: CASE EVENT DATE: 202006
